FAERS Safety Report 7765350-X (Version None)
Quarter: 2011Q3

REPORT INFORMATION
  Report Type: 
  Country: None (occurrence: None)
  Receive Date: 20110916
  Receipt Date: 20110909
  Transmission Date: 20111222
  Serious: Yes (Other)
  Sender: FDA-Public Use
  Company Number: 2011090068

PATIENT
  Age: 10 Year
  Sex: Female
  Weight: 25.855 kg

DRUGS (3)
  1. FELBATOL [Suspect]
     Indication: EPILEPSY
     Dosage: 600 MG/5 ML; 7 ML TWICE DAILY, 5 ML ONCE DAILY, ORAL
     Route: 048
     Dates: start: 20040101
  2. TOPAMAX [Concomitant]
  3. FRISIUM (CLOBAZAM) [Concomitant]

REACTIONS (3)
  - CONDITION AGGRAVATED [None]
  - CONVULSION [None]
  - LIQUID PRODUCT PHYSICAL ISSUE [None]
